FAERS Safety Report 8804961 (Version 2)
Quarter: 2013Q2

REPORT INFORMATION
  Report Type: Report from Study
  Country: DE (occurrence: DE)
  Receive Date: 20120924
  Receipt Date: 20130612
  Transmission Date: 20140414
  Serious: Yes (Life-Threatening, Hospitalization)
  Sender: FDA-Public Use
  Company Number: DE-ROCHE-1091867

PATIENT
  Age: 79 Year
  Sex: Male
  Weight: 77.4 kg

DRUGS (8)
  1. METHOXY POLYETHYLENE GLYCOL-EPOETIN BETA [Suspect]
     Indication: NEPHROGENIC ANAEMIA
     Dosage: LATEST DOSE ON 07/JUN/2011
     Route: 042
     Dates: start: 20101110
  2. METOPROLOL TARTRATE [Concomitant]
     Route: 065
     Dates: start: 20101116
  3. MOLSIDOMIN [Concomitant]
     Route: 065
     Dates: start: 20090708
  4. SIMVASTATIN [Concomitant]
     Route: 065
     Dates: start: 20080325
  5. CLOPIDOGREL BISULFATE [Concomitant]
     Route: 065
     Dates: start: 20091119
  6. NATRIUM BICARBONATE [Concomitant]
     Route: 065
     Dates: start: 20070508
  7. CALCIUM ACETATE [Concomitant]
     Route: 065
     Dates: start: 20100902
  8. CINACALCET HYDROCHLORIDE [Concomitant]
     Route: 065
     Dates: start: 20110223

REACTIONS (1)
  - Fracture displacement [Recovered/Resolved]
